FAERS Safety Report 4816483-9 (Version None)
Quarter: 2005Q4

REPORT INFORMATION
  Report Type: 
  Country: None (occurrence: None)
  Receive Date: 20051028
  Receipt Date: 20051021
  Transmission Date: 20060501
  Serious: Yes (Hospitalization, Other)
  Sender: FDA-Public Use
  Company Number: HQWYE283607SEP05

PATIENT
  Age: 51 Year
  Sex: Male

DRUGS (8)
  1. NEORAL [Suspect]
     Indication: PROPHYLAXIS AGAINST TRANSPLANT REJECTION
     Dosage: 75 MG 2X PER 1 DAY, ORAL
     Route: 048
     Dates: start: 20020911, end: 20050904
  2. PREDNISONE [Concomitant]
  3. MYCOPHENOLATE MOFETIL (MYCOPHENOLATE MOFETIL) [Concomitant]
  4. VASOTEC [Concomitant]
  5. OMEPRAZOLE [Concomitant]
  6. THORAZINE [Concomitant]
  7. CORDARONE [Concomitant]
  8. PREVISCAN (FLUINDIONE) [Concomitant]

REACTIONS (10)
  - CYTOMEGALOVIRUS ANTIGEN POSITIVE [None]
  - DISEASE PROGRESSION [None]
  - GENERAL PHYSICAL HEALTH DETERIORATION [None]
  - HAEMODIALYSIS [None]
  - HYPOXIA [None]
  - KIDNEY TRANSPLANT REJECTION [None]
  - PNEUMONIA [None]
  - PNEUMONIA BACTERIAL [None]
  - RENAL IMPAIRMENT [None]
  - THERAPY NON-RESPONDER [None]
